FAERS Safety Report 7196487-4 (Version None)
Quarter: 2010Q4

REPORT INFORMATION
  Report Type: 
  Country: None (occurrence: None)
  Receive Date: 20101223
  Receipt Date: 20101025
  Transmission Date: 20110411
  Serious: No
  Sender: FDA-Public Use
  Company Number: US-AMGEN-USASP2010002420

PATIENT

DRUGS (2)
  1. ENBREL [Suspect]
     Indication: RHEUMATOID ARTHRITIS
     Dosage: 50 MG, QWK
     Dates: start: 20060211, end: 20100401
  2. METHOTREXATE [Concomitant]
     Dates: start: 20060420

REACTIONS (2)
  - PAIN IN EXTREMITY [None]
  - THROMBOSIS [None]
